FAERS Safety Report 9215827 (Version 2)
Quarter: 2013Q2

REPORT INFORMATION
  Report Type: Other
  Country: US (occurrence: US)
  Receive Date: 20130408
  Receipt Date: 20130603
  Transmission Date: 20140414
  Serious: Yes (Death, Hospitalization)
  Sender: FDA-Public Use
  Company Number: US-SHIRE-ALL1-2013-02143

PATIENT
  Sex: Male

DRUGS (2)
  1. FOSRENOL [Suspect]
     Indication: RENAL FAILURE CHRONIC
     Dosage: 1000 MG, OTHER (6 TIMES DAILY)
     Route: 048
  2. COREG [Concomitant]
     Indication: PRODUCT USED FOR UNKNOWN INDICATION
     Route: 065

REACTIONS (3)
  - Thrombosis [Fatal]
  - Lower limb fracture [Unknown]
  - Prescribed overdose [Unknown]
